FAERS Safety Report 24027467 (Version 1)
Quarter: 2024Q2

REPORT INFORMATION
  Report Type: Spontaneous
  Country: US (occurrence: US)
  Receive Date: 20240628
  Receipt Date: 20240628
  Transmission Date: 20240716
  Serious: No
  Sender: FDA-Public Use
  Company Number: US-ROCHE-10000003107

PATIENT
  Age: 83 Year
  Sex: Male
  Weight: 65.77 kg

DRUGS (15)
  1. VABYSMO [Suspect]
     Active Substance: FARICIMAB\FARICIMAB-SVOA
     Indication: Neovascular age-related macular degeneration
     Route: 050
     Dates: start: 20230227
  2. VABYSMO [Suspect]
     Active Substance: FARICIMAB\FARICIMAB-SVOA
     Indication: Neovascular age-related macular degeneration
  3. AVASTIN [Suspect]
     Active Substance: BEVACIZUMAB
     Indication: Neovascular age-related macular degeneration
     Route: 050
     Dates: end: 20230227
  4. NUBEQA [Concomitant]
     Active Substance: DAROLUTAMIDE
     Indication: Prostate cancer
     Route: 048
  5. CALCIUM CITRATE [Concomitant]
     Active Substance: CALCIUM CITRATE
     Dosage: TAKES ONE TABLET TWICE DAILY
     Route: 048
  6. HYDROCHLOROTHIAZIDE [Concomitant]
     Active Substance: HYDROCHLOROTHIAZIDE
     Indication: Hypertension
     Route: 048
  7. AMLODIPINE [Concomitant]
     Active Substance: AMLODIPINE BESYLATE
     Indication: Hypertension
     Route: 048
  8. SERTRALINE [Concomitant]
     Active Substance: SERTRALINE HYDROCHLORIDE
     Indication: Depression
     Route: 048
  9. POTASSIUM [Concomitant]
     Active Substance: POTASSIUM
     Indication: Blood potassium decreased
     Route: 048
  10. PANTOPRAZOLE [Concomitant]
     Active Substance: PANTOPRAZOLE
     Indication: Gastrooesophageal reflux disease
     Route: 048
  11. PRED FORTE [Concomitant]
     Active Substance: PREDNISOLONE ACETATE
     Indication: Corneal graft rejection
     Dosage: USE ONE DROP IN EACH EYE EVERY OTHER DAY
     Route: 047
  12. GUAIFENESIN [Concomitant]
     Active Substance: GUAIFENESIN
     Dosage: TAKES ONE TABLET TWICE DAILY
     Route: 048
  13. ACYCLOVIR [Concomitant]
     Active Substance: ACYCLOVIR
     Indication: Herpes zoster
     Dosage: TAKES ONE TABLET TWICE DAILY
     Route: 048
  14. MINERALS\VITAMINS [Concomitant]
     Active Substance: MINERALS\VITAMINS
     Dosage: TAKES TWO TABLETS ONCE DAILY
     Route: 048
  15. FERROUS BISGLYCINATE [Concomitant]
     Active Substance: FERROUS BISGLYCINATE
     Indication: Anaemia
     Route: 048

REACTIONS (3)
  - Visual impairment [Recovered/Resolved]
  - Off label use [Unknown]
  - Retinal disorder [Unknown]

NARRATIVE: CASE EVENT DATE: 20230227
